FAERS Safety Report 9861974 (Version 1)
Quarter: 2014Q1

REPORT INFORMATION
  Report Type: Spontaneous
  Country: US (occurrence: US)
  Receive Date: 20140203
  Receipt Date: 20140203
  Transmission Date: 20141002
  Serious: No
  Sender: FDA-Public Use
  Company Number: US-OPTIMER-20130380

PATIENT
  Sex: Female
  Weight: 55.78 kg

DRUGS (10)
  1. DIFICID [Suspect]
     Indication: CLOSTRIDIAL INFECTION
     Dosage: 200 MG, BID
     Route: 048
     Dates: start: 201302, end: 201302
  2. NEURONTIN [Concomitant]
     Dosage: UNK
  3. ASPIRIN [Concomitant]
     Dosage: 81 MG, UNK
  4. SOTALOL [Concomitant]
     Dosage: UNK
  5. ARMOUR THYROID [Concomitant]
     Dosage: UNK
  6. CITRACAL + D [Concomitant]
     Dosage: UNK
  7. LEVOXYL [Concomitant]
     Dosage: UNK
  8. LOSARTAN [Concomitant]
     Dosage: UNK
  9. MIRALAX [Concomitant]
  10. VITAMIN D3 [Concomitant]
     Dosage: UNK

REACTIONS (2)
  - Clostridium difficile colitis [Not Recovered/Not Resolved]
  - Disease recurrence [Not Recovered/Not Resolved]
